FAERS Safety Report 15870870 (Version 1)
Quarter: 2019Q1

REPORT INFORMATION
  Report Type: Other
  Country: US (occurrence: US)
  Receive Date: 20190126
  Receipt Date: 20190126
  Transmission Date: 20190417
  Serious: No
  Sender: FDA-Public Use
  Company Number: US-ACORDA-ACO_154738_2018

PATIENT
  Sex: Female

DRUGS (5)
  1. HORIZANT [Concomitant]
     Active Substance: GABAPENTIN ENACARBIL
     Indication: NEURALGIA
     Dosage: 300 MILLIGRAM, QD (1 TABLET AT NOON)
     Route: 048
     Dates: start: 20180511
  2. AMPYRA [Suspect]
     Active Substance: DALFAMPRIDINE
     Indication: GAIT DISTURBANCE
     Dosage: 10 MILLIGRAM, BID
     Route: 048
  3. TYSABRI [Suspect]
     Active Substance: NATALIZUMAB
     Indication: MULTIPLE SCLEROSIS
     Dosage: 300 MILLIGRAM, MONTHLY (INFUSED OVER 1 HOUR)
     Route: 042
  4. NUVIGIL [Concomitant]
     Active Substance: ARMODAFINIL
     Indication: FATIGUE
     Dosage: 200 MILLIGRAM, QD
     Route: 048
  5. HORIZANT [Concomitant]
     Active Substance: GABAPENTIN ENACARBIL
     Dosage: 600 MILLIGRAM, BID
     Route: 048
     Dates: start: 20180511

REACTIONS (2)
  - Tibial torsion [Unknown]
  - Urinary tract infection [Unknown]
